FAERS Safety Report 13519467 (Version 4)
Quarter: 2019Q3

REPORT INFORMATION
  Report Type: Other
  Country: CA (occurrence: CA)
  Receive Date: 20170505
  Receipt Date: 20190716
  Transmission Date: 20191004
  Serious: Yes (Life-Threatening, Hospitalization, Other)
  Sender: FDA-Public Use
  Company Number: CA-BAXALTA-2017BLT003846

PATIENT

DRUGS (15)
  1. METHOTREXATE. [Suspect]
     Active Substance: METHOTREXATE
     Dosage: 12 MG, UNK (2 DOSES)
     Route: 037
     Dates: start: 20140331, end: 20160209
  2. CLONIDINE. [Concomitant]
     Active Substance: CLONIDINE
     Indication: ADVERSE EVENT
     Dosage: 0.5 UNK, 2X/DAY:BID
     Route: 048
     Dates: start: 20140407, end: 20140415
  3. CYTARABINE. [Suspect]
     Active Substance: CYTARABINE
     Dosage: 40 MG, ONE DOSE
     Route: 037
     Dates: start: 20140331, end: 20160209
  4. DOXORUBICIN HYDROCHLORIDE INJECTION [Suspect]
     Active Substance: DOXORUBICIN HYDROCHLORIDE
     Indication: ACUTE LYMPHOCYTIC LEUKAEMIA
     Dosage: 49 MG, UNK
     Route: 042
     Dates: start: 20140315, end: 20140922
  5. CYTARABINE. [Suspect]
     Active Substance: CYTARABINE
     Indication: ACUTE LYMPHOCYTIC LEUKAEMIA
     Dosage: 40 MG, ONE DOSE
     Route: 037
     Dates: start: 20140312, end: 20140312
  6. VINCRISTINE SULFATE. [Suspect]
     Active Substance: VINCRISTINE SULFATE
     Indication: ACUTE LYMPHOCYTIC LEUKAEMIA
     Dosage: 2 MG, UNK
     Route: 042
     Dates: start: 20140315, end: 20160412
  7. HYDROMORPHONE [Concomitant]
     Active Substance: HYDROMORPHONE
     Indication: ADVERSE EVENT
     Dosage: 0.5 MG, (EVERY 3-4 HOURS AS NEEDED)
     Route: 042
     Dates: start: 20140327, end: 20140423
  8. MERCAPTOPURINE. [Suspect]
     Active Substance: MERCAPTOPURINE
     Indication: ACUTE LYMPHOCYTIC LEUKAEMIA
     Dosage: 75-125 MG, 1X/DAY:QD (14 DAYS PER CYCLE)
     Route: 048
     Dates: start: 20140429, end: 20160406
  9. ACETAMINOPHEN. [Concomitant]
     Active Substance: ACETAMINOPHEN
     Indication: ADVERSE EVENT
     Dosage: UNK
     Route: 065
     Dates: start: 20140319
  10. ONCASPAR [Suspect]
     Active Substance: PEGASPARGASE
     Indication: ACUTE LYMPHOCYTIC LEUKAEMIA
     Dosage: 3675-3850 IU
     Route: 042
     Dates: start: 20140318, end: 20140521
  11. METHOTREXATE. [Suspect]
     Active Substance: METHOTREXATE
     Indication: ACUTE LYMPHOCYTIC LEUKAEMIA
     Dosage: 12-72.5 MG (INTRAVENOUS OR INTRAMUSCULAR)
     Route: 065
     Dates: start: 20140317, end: 20160426
  12. LANSOPRAZOLE. [Concomitant]
     Active Substance: LANSOPRAZOLE
     Indication: ADVERSE EVENT
     Dosage: UNK
     Route: 065
     Dates: start: 20140318
  13. METHOTREXATE. [Suspect]
     Active Substance: METHOTREXATE
     Dosage: 12 MG, UNK (2 DOSES)
     Route: 037
     Dates: start: 20140422, end: 20140429
  14. METHOTREXATE. [Suspect]
     Active Substance: METHOTREXATE
     Dosage: 0.72+6.48 G, ONE DOSE
     Route: 042
     Dates: start: 20140430, end: 20140430
  15. DEXAMETHASONE. [Concomitant]
     Active Substance: DEXAMETHASONE
     Indication: PRODUCT USED FOR UNKNOWN INDICATION

REACTIONS (6)
  - Constipation [Recovered/Resolved]
  - Hepatomegaly [Recovered/Resolved]
  - Enterocolitis [Recovered/Resolved]
  - Drug-induced liver injury [Recovered/Resolved]
  - Pancreatitis [Recovered/Resolved]
  - Anaphylactic shock [Recovered/Resolved]

NARRATIVE: CASE EVENT DATE: 2014
